FAERS Safety Report 4486922-4 (Version None)
Quarter: 2004Q3

REPORT INFORMATION
  Report Type: 
  Country: None (occurrence: None)
  Receive Date: 20040921
  Receipt Date: 20031008
  Transmission Date: 20050211
  Serious: Yes (Hospitalization)
  Sender: FDA-Public Use
  Company Number: 163-20785-03100225

PATIENT
  Age: 48 Year
  Sex: Male

DRUGS (5)
  1. THALOMID [Suspect]
     Indication: SCLERODERMA
     Dosage: SEE IMAGE
     Route: 048
     Dates: start: 20030908, end: 20030922
  2. THALOMID [Suspect]
     Indication: SCLERODERMA
     Dosage: SEE IMAGE
     Route: 048
     Dates: start: 20030923
  3. THALOMID [Suspect]
     Indication: SCLERODERMA
     Dosage: SEE IMAGE
     Route: 048
     Dates: start: 20031010
  4. NEXIUM [Concomitant]
  5. ARTHROTEC [Concomitant]

REACTIONS (5)
  - CHEST PAIN [None]
  - CORONARY ARTERY DISEASE [None]
  - DYSPNOEA [None]
  - ELECTROCARDIOGRAM ABNORMAL [None]
  - MYOCARDIAL INFARCTION [None]
